FAERS Safety Report 9931323 (Version 3)
Quarter: 2014Q2

REPORT INFORMATION
  Report Type: Spontaneous
  Country: US (occurrence: US)
  Receive Date: 20140228
  Receipt Date: 20140611
  Transmission Date: 20141212
  Serious: Yes (Hospitalization, Other)
  Sender: FDA-Public Use
  Company Number: US-JNJFOC-20140215665

PATIENT
  Age: 24 Year
  Sex: Male
  Weight: 81.65 kg

DRUGS (10)
  1. EXTRA STRENGTH TYLENOL [Suspect]
     Indication: PAIN
     Dosage: 6-8 PER DAY
     Route: 048
     Dates: start: 20120421, end: 20120427
  2. EXTRA STRENGTH TYLENOL [Suspect]
     Indication: HIP FRACTURE
     Dosage: 6-8 PER DAY
     Route: 048
     Dates: start: 20120421, end: 20120427
  3. REGULAR STRENGTH TYLENOL [Suspect]
     Route: 065
  4. REGULAR STRENGTH TYLENOL [Suspect]
     Indication: PAIN
     Dosage: WHEN NEEDED
     Route: 065
  5. NYQUIL [Concomitant]
     Indication: PAIN
     Dosage: WHEN NEEDED
     Route: 065
  6. ROXICODONE [Concomitant]
     Indication: FRACTURE
     Dosage: 10-15 MG DAILY 4 HOURS AS NEEDED
     Route: 065
     Dates: start: 201204
  7. ROXICODONE [Concomitant]
     Indication: PAIN
     Dosage: 10-15 MG DAILY 4 HOURS AS NEEDED
     Route: 065
     Dates: start: 201204
  8. ENOXAPARIN [Concomitant]
     Indication: FRACTURE
     Dosage: DAILY
     Route: 065
     Dates: start: 201204
  9. FLEXERIL [Concomitant]
     Indication: FRACTURE
     Dosage: AS NEEDED
     Route: 048
     Dates: start: 201204
  10. OMEPRAZOLE [Concomitant]
     Indication: GASTROOESOPHAGEAL REFLUX DISEASE
     Dosage: AS NEEDED
     Route: 065
     Dates: start: 200505

REACTIONS (3)
  - Acute hepatic failure [Recovering/Resolving]
  - Toxicity to various agents [Unknown]
  - Accidental overdose [Recovering/Resolving]
